FAERS Safety Report 18794653 (Version 2)
Quarter: 2021Q1

REPORT INFORMATION
  Report Type: Report from Study
  Country: KR (occurrence: KR)
  Receive Date: 20210127
  Receipt Date: 20210325
  Transmission Date: 20210419
  Serious: Yes (Hospitalization)
  Sender: FDA-Public Use
  Company Number: KR-JNJFOC-20210122142

PATIENT
  Age: 57 Year
  Sex: Female

DRUGS (24)
  1. SMOFKABIVEN [Concomitant]
     Active Substance: AMINO ACIDS\DEXTROSE\ELECTROLYTES NOS\SOYBEAN OIL
     Indication: ENTEROCUTANEOUS FISTULA
     Route: 042
     Dates: start: 20200108, end: 20200122
  2. TAGAMET [Concomitant]
     Active Substance: CIMETIDINE
     Indication: VULVOVAGINAL INJURY
     Route: 042
     Dates: start: 20200805, end: 20200806
  3. PETHIDINE HYDROCHLORIDE [Concomitant]
     Active Substance: MEPERIDINE HYDROCHLORIDE
     Indication: VULVOVAGINAL INJURY
     Route: 042
     Dates: start: 20200806, end: 20200806
  4. ADENOSINE TRIPHOSPHATE DISODIUM [Concomitant]
     Active Substance: ADENOSINE TRIPHOSPHATE DISODIUM
     Indication: VULVOVAGINAL INJURY
     Route: 042
     Dates: start: 20200807, end: 20200807
  5. STELARA [Suspect]
     Active Substance: USTEKINUMAB
     Indication: CROHN^S DISEASE
     Route: 042
     Dates: start: 20191129
  6. WINUF PERI [Concomitant]
     Active Substance: AMINO ACIDS\DEXTROSE\ELECTROLYTES NOS\SOYBEAN OIL\VITAMINS
     Indication: VULVOVAGINAL INJURY
     Route: 042
     Dates: start: 20200806, end: 20200806
  7. OMEGA?3?ACID ETHYL ESTER [Concomitant]
     Active Substance: OMEGA-3-ACID ETHYL ESTERS
     Indication: VULVOVAGINAL INJURY
     Route: 042
     Dates: start: 20200806, end: 20201103
  8. TRANEXAMIC ACID. [Concomitant]
     Active Substance: TRANEXAMIC ACID
     Indication: VULVOVAGINAL INJURY
     Route: 042
     Dates: start: 20200806, end: 20200807
  9. CHOLECALCIFEROL [Concomitant]
     Active Substance: CHOLECALCIFEROL
     Indication: VULVOVAGINAL INJURY
     Route: 048
     Dates: start: 20200806, end: 20201103
  10. ALOGLIPTIN BENZOATE [Concomitant]
     Active Substance: ALOGLIPTIN BENZOATE
     Indication: DIABETES MELLITUS
     Route: 048
     Dates: start: 20190218
  11. IMDUR [Concomitant]
     Active Substance: ISOSORBIDE MONONITRATE
     Indication: VULVOVAGINAL INJURY
     Route: 048
     Dates: start: 20200806, end: 20201108
  12. MOSAPRIDE [Concomitant]
     Active Substance: MOSAPRIDE
     Indication: VULVOVAGINAL INJURY
     Route: 048
     Dates: start: 20200807, end: 20200809
  13. CEFBUPERAZONE. [Concomitant]
     Active Substance: CEFBUPERAZONE
     Indication: VULVOVAGINAL INJURY
     Route: 042
     Dates: start: 20200806, end: 20200807
  14. RABONED [Concomitant]
     Indication: OSTEOPOROSIS
     Route: 048
     Dates: start: 20200813
  15. STELARA [Suspect]
     Active Substance: USTEKINUMAB
     Route: 058
     Dates: start: 20200121
  16. IRON ISOMALTOSIDE 1000 [Concomitant]
     Active Substance: IRON ISOMALTOSIDE 1000
     Indication: ANAEMIA
     Route: 042
     Dates: start: 20191129
  17. DIAZEPAM. [Concomitant]
     Active Substance: DIAZEPAM
     Indication: VULVOVAGINAL INJURY
     Route: 042
     Dates: start: 20200806, end: 20200806
  18. ROXATIDINE [Concomitant]
     Active Substance: ROXATIDINE
     Indication: VULVOVAGINAL INJURY
     Route: 048
     Dates: start: 20200806, end: 20201103
  19. FOLIC ACID. [Concomitant]
     Active Substance: FOLIC ACID
     Indication: ANAEMIA
     Route: 048
     Dates: start: 20180508
  20. THIOCTIC ACID [Concomitant]
     Active Substance: .ALPHA.-LIPOIC ACID
     Indication: VULVOVAGINAL INJURY
     Route: 042
     Dates: start: 20200807, end: 20200807
  21. FURSULTIAMINE [Concomitant]
     Active Substance: FURSULTIAMINE
     Indication: VULVOVAGINAL INJURY
     Route: 042
     Dates: start: 20200807, end: 20200807
  22. DRIED FERROUS SULPHATE [Concomitant]
     Indication: ANAEMIA
     Route: 048
     Dates: start: 20200130
  23. CEFIXIME. [Concomitant]
     Active Substance: CEFIXIME
     Indication: VULVOVAGINAL INJURY
     Route: 048
     Dates: start: 20200807, end: 20200809
  24. TETRASPAN [Concomitant]
     Indication: VULVOVAGINAL INJURY
     Route: 042
     Dates: start: 20200805, end: 20200807

REACTIONS (1)
  - Female genital tract fistula [Recovered/Resolved]

NARRATIVE: CASE EVENT DATE: 20201121
